FAERS Safety Report 11096013 (Version 1)
Quarter: 2015Q2

REPORT INFORMATION
  Report Type: Spontaneous
  Country: ES (occurrence: None)
  Receive Date: 20150505
  Receipt Date: 20150505
  Transmission Date: 20150821
  Serious: Yes (Hospitalization)
  Sender: FDA-Public Use
  Company Number: ES-DEXPHARM-20150304

PATIENT
  Age: 86 Year
  Sex: Female

DRUGS (12)
  1. MEROPENEM. [Concomitant]
     Active Substance: MEROPENEM
  2. LINEZOLID. [Suspect]
     Active Substance: LINEZOLID
     Route: 042
  3. SEGURIL [Suspect]
     Active Substance: FUROSEMIDE
     Route: 042
  4. POTASION [Concomitant]
     Active Substance: POTASSIUM CHLORIDE
  5. PREDNISONE. [Suspect]
     Active Substance: PREDNISONE
     Route: 048
  6. PRIMPERAN [Suspect]
     Active Substance: METOCLOPRAMIDE HYDROCHLORIDE
     Route: 048
  7. QUETIAPINE [Concomitant]
     Active Substance: QUETIAPINE
     Route: 048
     Dates: start: 20140618
  8. CICLOFALINA [Concomitant]
     Active Substance: PIRACETAM
  9. CLEXANE [Concomitant]
     Active Substance: ENOXAPARIN SODIUM
  10. FLUMIL [Concomitant]
     Active Substance: ACETYLCYSTEINE
  11. MIANSERIN [Suspect]
     Active Substance: MIANSERIN
     Route: 048
     Dates: start: 20140618
  12. OMEPRAZOLE. [Suspect]
     Active Substance: OMEPRAZOLE
     Route: 048

REACTIONS (11)
  - Sedation [None]
  - Tremor [None]
  - Dizziness [None]
  - Drug interaction [None]
  - Condition aggravated [None]
  - Multiple drug therapy [None]
  - Fatigue [None]
  - Confusional state [None]
  - Aspiration [None]
  - Respiratory distress [None]
  - Electrolyte imbalance [None]
